FAERS Safety Report 20125906 (Version 1)
Quarter: 2021Q4

REPORT INFORMATION
  Report Type: Spontaneous
  Country: US (occurrence: US)
  Receive Date: 20211129
  Receipt Date: 20211129
  Transmission Date: 20220303
  Serious: Yes (Life-Threatening, Hospitalization)
  Sender: FDA-Public Use
  Company Number: US-MYLANLABS-2021M1087499

PATIENT
  Age: 51 Year
  Sex: Male

DRUGS (31)
  1. TERAZOSIN [Suspect]
     Active Substance: TERAZOSIN HYDROCHLORIDE
     Indication: Phaeochromocytoma
     Dosage: 2 MILLIGRAM, BID
     Route: 065
  2. SODIUM NITROPRUSSIDE [Suspect]
     Active Substance: SODIUM NITROPRUSSIDE
     Indication: Hypertension
     Dosage: UNK
     Route: 065
  3. ESMOLOL [Suspect]
     Active Substance: ESMOLOL HYDROCHLORIDE
     Indication: Hypertension
     Dosage: UNK
     Route: 065
  4. EPINEPHRINE [Suspect]
     Active Substance: EPINEPHRINE
     Indication: Cardiogenic shock
     Dosage: UNK, INFUSION
  5. EPINEPHRINE [Suspect]
     Active Substance: EPINEPHRINE
     Indication: Shock
  6. FENOLDOPAM [Suspect]
     Active Substance: FENOLDOPAM
     Indication: Hypertension
     Dosage: UNK
     Route: 065
  7. CLEVIDIPINE [Suspect]
     Active Substance: CLEVIDIPINE
     Indication: Hypertension
     Dosage: UNK, INFUSION
  8. CLEVIDIPINE [Suspect]
     Active Substance: CLEVIDIPINE
     Dosage: INCREMENTAL BOLUSES
     Route: 065
  9. VASOPRESSIN [Suspect]
     Active Substance: VASOPRESSIN
     Indication: Cardiogenic shock
     Dosage: BOLUSES
     Route: 065
  10. VASOPRESSIN [Suspect]
     Active Substance: VASOPRESSIN
     Indication: Shock
  11. METHYLENE BLUE [Suspect]
     Active Substance: METHYLENE BLUE
     Indication: Cardiogenic shock
     Dosage: 1 MILLIGRAM/KILOGRAM
     Route: 065
  12. METHYLENE BLUE [Suspect]
     Active Substance: METHYLENE BLUE
     Indication: Shock
  13. BISOPROLOL [Concomitant]
     Active Substance: BISOPROLOL
     Indication: Phaeochromocytoma
     Dosage: 10 MILLIGRAM, QD
     Route: 065
  14. LOSARTAN [Concomitant]
     Active Substance: LOSARTAN
     Indication: Phaeochromocytoma
     Dosage: 50 MILLIGRAM, BID
     Route: 065
  15. AMLODIPINE [Concomitant]
     Active Substance: AMLODIPINE BESYLATE
     Indication: Phaeochromocytoma
     Dosage: 2.5 MILLIGRAM, BID
     Route: 065
  16. DEXMEDETOMIDINE [Concomitant]
     Active Substance: DEXMEDETOMIDINE
     Indication: Sedative therapy
     Dosage: UNK
     Route: 065
  17. DEXMEDETOMIDINE [Concomitant]
     Active Substance: DEXMEDETOMIDINE
     Dosage: 1.7 MCG/KG/MIN
     Route: 065
  18. MIDAZOLAM [Concomitant]
     Active Substance: MIDAZOLAM
     Indication: Sedative therapy
     Dosage: UNK
     Route: 065
  19. MIDAZOLAM [Concomitant]
     Active Substance: MIDAZOLAM
     Dosage: 8 MILLIGRAM, QH
     Route: 065
  20. FENTANYL [Concomitant]
     Active Substance: FENTANYL
     Indication: Anaesthesia
     Dosage: UNK
     Route: 065
  21. PROPOFOL [Concomitant]
     Active Substance: PROPOFOL
     Indication: Anaesthesia
     Dosage: UNK
     Route: 065
  22. ROCURONIUM [Concomitant]
     Active Substance: ROCURONIUM BROMIDE
     Indication: Anaesthesia
     Dosage: UNK
     Route: 065
  23. LIDOCAINE [Concomitant]
     Active Substance: LIDOCAINE
     Indication: Product used for unknown indication
     Dosage: UNK
     Route: 065
  24. SUFENTANIL [Concomitant]
     Active Substance: SUFENTANIL
     Indication: Analgesic therapy
     Dosage: UNK, INFUSION
  25. NITROGLYCERIN [Concomitant]
     Active Substance: NITROGLYCERIN
     Indication: Hypertension
     Dosage: UNK, INFUSION
  26. INSULIN NOS [Concomitant]
     Active Substance: INSULIN NOS
     Indication: Hyperglycaemia
     Dosage: HIGH DOSE
     Route: 065
  27. HYDROMORPHONE [Concomitant]
     Active Substance: HYDROMORPHONE
     Indication: Sedative therapy
     Dosage: 8 MILLIGRAM, QH
     Route: 065
  28. CISATRACURIUM [Concomitant]
     Active Substance: CISATRACURIUM
     Indication: Paralysis
     Dosage: UNK, INFUSION
  29. AMIODARONE [Concomitant]
     Active Substance: AMIODARONE
     Indication: Ventricular tachycardia
     Dosage: UNK
     Route: 065
  30. SEVOFLURANE [Concomitant]
     Active Substance: SEVOFLURANE
     Indication: Sedative therapy
     Dosage: UNK, INFUSION
  31. REMIFENTANIL [Concomitant]
     Active Substance: REMIFENTANIL
     Indication: Sedative therapy
     Dosage: UNK, INFUSION

REACTIONS (3)
  - Drug ineffective [Unknown]
  - Hypotension [Unknown]
  - Syncope [Unknown]
